FAERS Safety Report 17747166 (Version 1)
Quarter: 2020Q2

REPORT INFORMATION
  Report Type: Spontaneous
  Country: CA (occurrence: CA)
  Receive Date: 20200505
  Receipt Date: 20200505
  Transmission Date: 20200714
  Serious: Yes (Hospitalization, Other)
  Sender: FDA-Public Use
  Company Number: CA-BAYER-2020-068965

PATIENT
  Age: 78 Year
  Sex: Male
  Weight: 80 kg

DRUGS (6)
  1. METOPROLOL. [Concomitant]
     Active Substance: METOPROLOL
  2. COLCHICINE. [Concomitant]
     Active Substance: COLCHICINE
  3. NORVASC [Concomitant]
     Active Substance: AMLODIPINE BESYLATE
     Dosage: 5 MG
  4. NEXAVAR [Suspect]
     Active Substance: SORAFENIB
     Indication: HEPATOCELLULAR CARCINOMA
     Dosage: 400 MG, QD
  5. PANTOLOC [PANTOPRAZOLE] [Concomitant]
     Active Substance: PANTOPRAZOLE SODIUM
  6. INDAPAMIDE. [Concomitant]
     Active Substance: INDAPAMIDE
     Dosage: UNK

REACTIONS (12)
  - Abdominal pain [None]
  - Abdominal pain upper [None]
  - Bursitis [None]
  - Decreased appetite [None]
  - Erythema [None]
  - Hypercalcaemia [None]
  - Joint swelling [None]
  - Hospitalisation [None]
  - Off label use [None]
  - Arthralgia [None]
  - Arthritis [None]
  - Feeling hot [None]
